FAERS Safety Report 8478303-3 (Version None)
Quarter: 2012Q2

REPORT INFORMATION
  Report Type: 
  Country: None (occurrence: None)
  Receive Date: 20120629
  Receipt Date: 20120621
  Transmission Date: 20120825
  Serious: Yes (Hospitalization)
  Sender: FDA-Public Use
  Company Number: CA-JNJFOC-20120611254

PATIENT
  Sex: Male
  Weight: 62.3 kg

DRUGS (3)
  1. PREDNISONE [Concomitant]
     Route: 065
  2. REMICADE [Suspect]
     Indication: CROHN'S DISEASE
     Route: 042
  3. PREDNISONE [Concomitant]
     Route: 065

REACTIONS (2)
  - INFLAMMATION [None]
  - GASTROINTESTINAL INFLAMMATION [None]
